FAERS Safety Report 22530327 (Version 1)
Quarter: 2023Q2

REPORT INFORMATION
  Report Type: Spontaneous
  Country: US (occurrence: US)
  Receive Date: 20230607
  Receipt Date: 20230607
  Transmission Date: 20230721
  Serious: Yes (Hospitalization)
  Sender: FDA-Public Use
  Company Number: US-Melinta Therapeutics, LLC-US-MLNT-23-00314

PATIENT
  Sex: Male

DRUGS (2)
  1. ORBACTIV [Suspect]
     Active Substance: ORITAVANCIN
     Indication: Product used for unknown indication
     Dosage: NOT PROVIDED.
     Route: 041
     Dates: start: 20230302, end: 20230302
  2. ORBACTIV [Suspect]
     Active Substance: ORITAVANCIN
     Dosage: PATIENT COMPLETED MOST OF THE ORBACTIV INFUSION (50 ML LEFT IN BAG).
     Route: 041

REACTIONS (9)
  - Paraesthesia [Unknown]
  - Hypoaesthesia [Unknown]
  - Feeling cold [Unknown]
  - Pallor [Unknown]
  - Blood pressure increased [Unknown]
  - Chills [Unknown]
  - Nausea [Unknown]
  - Infusion related reaction [Unknown]
  - Multiple use of single-use product [Unknown]

NARRATIVE: CASE EVENT DATE: 20230302
